FAERS Safety Report 6623029-1 (Version None)
Quarter: 2010Q1

REPORT INFORMATION
  Report Type: 
  Country: None (occurrence: None)
  Receive Date: 20100310
  Receipt Date: 20091214
  Transmission Date: 20100710
  Serious: Yes (Hospitalization)
  Sender: FDA-Public Use
  Company Number: US-BIOGENIDEC-2009BI039901

PATIENT
  Age: 62 Year
  Sex: Female

DRUGS (5)
  1. AVONEX [Suspect]
     Indication: MULTIPLE SCLEROSIS
     Route: 030
     Dates: start: 20080222
  2. AVONEX [Suspect]
     Route: 030
     Dates: start: 20091127
  3. LISINOPRIL [Concomitant]
     Indication: HYPERTENSION
  4. INCEPT (NOS) [Concomitant]
     Indication: HYPERTENSION
  5. NAMENDA [Concomitant]

REACTIONS (1)
  - MULTIPLE SCLEROSIS RELAPSE [None]
